FAERS Safety Report 14497874 (Version 1)
Quarter: 2018Q1

REPORT INFORMATION
  Report Type: Spontaneous
  Country: FR (occurrence: FR)
  Receive Date: 20180207
  Receipt Date: 20180207
  Transmission Date: 20180509
  Serious: Yes (Hospitalization)
  Sender: FDA-Public Use
  Company Number: PHHY2018FR015443

PATIENT
  Age: 87 Year
  Sex: Female
  Weight: 51.1 kg

DRUGS (1)
  1. ACLASTA [Suspect]
     Active Substance: ZOLEDRONIC ACID
     Indication: OSTEOPOROSIS
     Dosage: 5 MG, UNK
     Route: 042

REACTIONS (7)
  - Pyrexia [Recovering/Resolving]
  - Inflammation [Recovering/Resolving]
  - Hepatocellular injury [Unknown]
  - Influenza like illness [Recovering/Resolving]
  - Acute kidney injury [Recovering/Resolving]
  - Erythema [Recovering/Resolving]
  - Diarrhoea [Recovering/Resolving]

NARRATIVE: CASE EVENT DATE: 20171123
